FAERS Safety Report 20328683 (Version 1)
Quarter: 2022Q1

REPORT INFORMATION
  Report Type: Report from Study
  Country: US (occurrence: US)
  Receive Date: 20220112
  Receipt Date: 20220112
  Transmission Date: 20220423
  Serious: Yes (Hospitalization)
  Sender: FDA-Public Use
  Company Number: US-EXELIXIS-CABO-22047986

PATIENT
  Age: 72 Year
  Sex: Female

DRUGS (2)
  1. CABOMETYX [Suspect]
     Active Substance: CABOZANTINIB S-MALATE
     Indication: Renal cell carcinoma
     Dosage: 40 MG
     Dates: start: 20211213, end: 20211224
  2. ZEJULA [Concomitant]
     Active Substance: NIRAPARIB
     Dosage: UNK

REACTIONS (1)
  - Joint injection [Unknown]

NARRATIVE: CASE EVENT DATE: 20211201
